FAERS Safety Report 24541030 (Version 1)
Quarter: 2024Q4

REPORT INFORMATION
  Report Type: Spontaneous
  Country: US (occurrence: US)
  Receive Date: 20241023
  Receipt Date: 20241023
  Transmission Date: 20250115
  Serious: No
  Sender: JUBILANT
  Company Number: US-JUBILANT CADISTA PHARMACEUTICALS INC.-2024JUB00022

PATIENT
  Age: 53 Year
  Sex: Female
  Weight: 58.05 kg

DRUGS (3)
  1. PREDNISONE [Suspect]
     Active Substance: PREDNISONE
     Indication: Inflammation
     Dosage: 20 MG, 3X/DAY, MORNING, NOON AND EVENING
     Route: 048
     Dates: start: 20240306, end: 20240307
  2. PREDNISONE [Suspect]
     Active Substance: PREDNISONE
     Dosage: 20 MG, 2X/DAY, MORNING AND NIGHT
     Route: 048
     Dates: start: 20240308, end: 20240309
  3. PREDNISONE [Suspect]
     Active Substance: PREDNISONE
     Dosage: 20 MG, 1X/DAY, IN THE MORNING
     Route: 048
     Dates: start: 20240310, end: 20240311

REACTIONS (9)
  - Ageusia [Recovering/Resolving]
  - Dizziness [Recovered/Resolved]
  - Tachycardia [Recovered/Resolved]
  - Insomnia [Recovered/Resolved]
  - Tachyphrenia [Recovered/Resolved]
  - Palpitations [Recovered/Resolved]
  - Tinnitus [Not Recovered/Not Resolved]
  - Flushing [Recovered/Resolved]
  - Unevaluable event [Recovered/Resolved]

NARRATIVE: CASE EVENT DATE: 20240306
